FAERS Safety Report 8241594-8 (Version None)
Quarter: 2012Q1

REPORT INFORMATION
  Report Type: 
  Country: None (occurrence: None)
  Receive Date: 20120328
  Receipt Date: 20120322
  Transmission Date: 20120608
  Serious: Yes (Other)
  Sender: FDA-Public Use
  Company Number: CHPA2012DE005448

PATIENT
  Sex: Female
  Weight: 68 kg

DRUGS (1)
  1. SCOPOLAMINE [Suspect]
     Indication: MOTION SICKNESS
     Dosage: 1 DF, Q96H
     Route: 062

REACTIONS (9)
  - SOMNOLENCE [None]
  - DRUG INEFFECTIVE [None]
  - COGNITIVE DISORDER [None]
  - INAPPROPRIATE SCHEDULE OF DRUG ADMINISTRATION [None]
  - HYPERSOMNIA [None]
  - VISUAL IMPAIRMENT [None]
  - BLEPHAROSPASM [None]
  - FEELING HOT [None]
  - DRY MOUTH [None]
